FAERS Safety Report 5851733-1 (Version None)
Quarter: 2008Q3

REPORT INFORMATION
  Report Type: 
  Country: None (occurrence: None)
  Receive Date: 20080820
  Receipt Date: 20080812
  Transmission Date: 20090109
  Serious: Yes (Hospitalization)
  Sender: FDA-Public Use
  Company Number: PHHY2008DE17947

PATIENT
  Sex: Female

DRUGS (5)
  1. RASILEZ [Suspect]
     Indication: HYPERTENSION
     Dosage: 150
     Dates: end: 20080530
  2. INEGY [Concomitant]
     Indication: HYPERCHOLESTEROLAEMIA
     Dosage: 10
     Route: 048
     Dates: end: 20080530
  3. JUTABLOC [Concomitant]
     Indication: HYPERTENSION
     Dosage: 200
     Route: 048
     Dates: end: 20080530
  4. FELODIPINE [Concomitant]
     Dosage: 10
  5. HYDROCHLOROTHIAZIDE [Concomitant]
     Indication: HYPERTENSION
     Dosage: 25
     Route: 048
     Dates: end: 20080530

REACTIONS (5)
  - BLOOD POTASSIUM DECREASED [None]
  - CONFUSIONAL STATE [None]
  - DIARRHOEA [None]
  - DYSARTHRIA [None]
  - HYPONATRAEMIA [None]
